FAERS Safety Report 8872102 (Version 1)
Quarter: 2012Q4

REPORT INFORMATION
  Report Type: Spontaneous
  Country: US (occurrence: None)
  Receive Date: 20121024
  Receipt Date: 20121024
  Transmission Date: 20130627
  Serious: Yes (Other)
  Sender: FDA-Public Use
  Company Number: ACO_32624_2012

PATIENT
  Age: 48 None
  Sex: Female

DRUGS (15)
  1. AMPYRA [Suspect]
     Indication: DRUG USE FOR UNKNOWN INDICATION
     Dates: start: 201101
  2. SINGULAIR (MONTELUKAST SODIUM) [Concomitant]
  3. NORVASC (AMLODIPINE BESILATE) [Concomitant]
  4. NASONEX (MOMETASONE FUROATE) [Concomitant]
  5. BACOFEN (BACLOFEN) [Concomitant]
  6. VALTREX (VALACICLOVIR HYDROCHLORIDE) [Concomitant]
  7. WELLBUTRIN (BUPROPION HYDROCHLORIDE) [Concomitant]
  8. ZYRTEC (CETIRIZINE HYDROCHLORIDE) [Concomitant]
  9. VITAMIN B COMPLEX (CALCIUM PANTOTHENATE, NICOTINAMIDE, PYRIDOXINE HYDROCHLORIDE, RIBOFLAVIN, THIAMINE HYDROCHLORIDE) [Concomitant]
  10. ASPIRIN (ACETYLSALICYLIC ACID) [Concomitant]
  11. ALL OTHER THERAPEUTIC PRODUCTS [Concomitant]
  12. MULTIVITAMIN (VITAMINS NOS) [Concomitant]
  13. ALPHA LIPOIC ACID (THIOCTIC ACID) [Concomitant]
  14. PROVIGIL (MODAFINIL) [Concomitant]
  15. AVONEX (INTERFERON BETA-1A) [Concomitant]

REACTIONS (6)
  - Poor peripheral circulation [None]
  - Pain [None]
  - Oedema peripheral [None]
  - Joint swelling [None]
  - Hypoaesthesia [None]
  - Pollakiuria [None]
